FAERS Safety Report 5607485-3 (Version None)
Quarter: 2008Q1

REPORT INFORMATION
  Report Type: 
  Country: None (occurrence: None)
  Receive Date: 20080130
  Receipt Date: 20080121
  Transmission Date: 20080703
  Serious: Yes (Other)
  Sender: FDA-Public Use
  Company Number: AU-ALLERGAN-0800939US

PATIENT

DRUGS (1)
  1. BOTULINUM TOXIN TYPE A - GENERAL [Suspect]
     Indication: DROOLING
     Dosage: 4 IU/KG, SINGLE

REACTIONS (1)
  - LOWER RESPIRATORY TRACT INFECTION [None]
